FAERS Safety Report 5173205-2 (Version None)
Quarter: 2006Q4

REPORT INFORMATION
  Report Type: 
  Country: None (occurrence: None)
  Receive Date: 20061205
  Receipt Date: 20061116
  Transmission Date: 20070319
  Serious: Yes (Other)
  Sender: FDA-Public Use
  Company Number: 232798

PATIENT
  Age: 38 Year
  Sex: Female
  Weight: 54.3 kg

DRUGS (8)
  1. BEVACIZUMAB OR PLACEBO(BEVACIZUMAB) PWDR + SOLVENT,INFUSION SOLN, 100M [Suspect]
     Indication: NON-SMALL CELL LUNG CANCER
     Dosage: 15 MG/KG, Q3W, INTRAVENOUS
     Route: 042
     Dates: start: 20051028, end: 20061115
  2. BEVACIZUMAB OR PLACEBO (BEVACIZUMAB) PWDR + SOLVENT, INFUSION SOLN, 10 [Suspect]
  3. CISPLATIN [Suspect]
     Indication: NON-SMALL CELL LUNG CANCER
     Dosage: 80 MG/M2, Q3W, INTRAVENOUS
     Route: 042
     Dates: start: 20051028, end: 20060315
  4. GEMCITABINE [Suspect]
     Indication: NON-SMALL CELL LUNG CANCER
     Dosage: 1250 MG/M2, INTRAVENOUS
     Route: 042
     Dates: start: 20051028, end: 20060322
  5. VENTOLIN (ALBUTEROL/ALBUTEROL SULFATE) [Concomitant]
  6. TYLENOL #3 (CANADA) (ACETAMINOPHEN, CAFFEINE, CODEINE PHOSPHATE) [Concomitant]
  7. TYLENOL #1 (CANADA) (ACETAMINOPHEN, CAFFEINE, CODEINE PHOSPHATE) [Concomitant]
  8. ALTACE [Concomitant]

REACTIONS (4)
  - HEADACHE [None]
  - METASTASES TO CENTRAL NERVOUS SYSTEM [None]
  - VASCULITIS [None]
  - VISUAL DISTURBANCE [None]
